FAERS Safety Report 7369104-8 (Version None)
Quarter: 2011Q1

REPORT INFORMATION
  Report Type: 
  Country: None (occurrence: None)
  Receive Date: 20110323
  Receipt Date: 20110318
  Transmission Date: 20110831
  Serious: Yes (Hospitalization, Other)
  Sender: FDA-Public Use
  Company Number: US-ROCHE-552232

PATIENT
  Sex: Male
  Weight: 59.4 kg

DRUGS (1)
  1. ACCUTANE [Suspect]
     Indication: ACNE
     Route: 048
     Dates: start: 19980201, end: 19980401

REACTIONS (8)
  - CHEILITIS [None]
  - HYDRONEPHROSIS [None]
  - NEPHROLITHIASIS [None]
  - INFLAMMATORY BOWEL DISEASE [None]
  - MUSCULOSKELETAL STIFFNESS [None]
  - CLOSTRIDIAL INFECTION [None]
  - IRON DEFICIENCY ANAEMIA [None]
  - COLITIS ULCERATIVE [None]
